FAERS Safety Report 18705493 (Version 1)
Quarter: 2021Q1

REPORT INFORMATION
  Report Type: Spontaneous
  Country: US (occurrence: US)
  Receive Date: 20210105
  Receipt Date: 20210105
  Transmission Date: 20210419
  Serious: Yes (Other)
  Sender: FDA-Public Use
  Company Number: None

PATIENT
  Age: 33 Year
  Sex: Male
  Weight: 90.72 kg

DRUGS (5)
  1. DIPHENHYDRAMINE 50 IV [Concomitant]
     Dates: start: 20191014, end: 20201201
  2. INFLECTRA [Suspect]
     Active Substance: INFLIXIMAB-DYYB
     Indication: CROHN^S DISEASE
     Dosage: ?          OTHER DOSE:INFLECTRA 440 MG;OTHER FREQUENCY:EVERY 8 WEEKS;OTHER ROUTE:IV?
     Dates: start: 20191014, end: 20201118
  3. LORATADINE 10 MG [Concomitant]
     Active Substance: LORATADINE
     Dates: start: 20201111, end: 20201201
  4. ACETAMINOPHEN 325MG [Concomitant]
     Dates: start: 20191014
  5. DIPHENHYDRAMINE 25MG [Concomitant]
     Active Substance: DIPHENHYDRAMINE
     Dates: start: 20191014

REACTIONS (5)
  - Cough [None]
  - Ocular hyperaemia [None]
  - Infusion related reaction [None]
  - Dyspnoea [None]
  - Cyanosis [None]

NARRATIVE: CASE EVENT DATE: 20201118
